FAERS Safety Report 9986796 (Version 1)
Quarter: 2014Q1

REPORT INFORMATION
  Report Type: Report from Study
  Country: US (occurrence: US)
  Receive Date: 20140307
  Receipt Date: 20140307
  Transmission Date: 20141002
  Serious: No
  Sender: FDA-Public Use
  Company Number: US-ABBVIE-13P-163-1082710-00

PATIENT
  Age: 28 Year
  Sex: Male

DRUGS (3)
  1. HUMIRA [Suspect]
     Indication: PSORIASIS
     Route: 058
     Dates: start: 20130406
  2. CELEXA [Concomitant]
     Indication: PRODUCT USED FOR UNKNOWN INDICATION
  3. ADDERALL [Concomitant]
     Indication: PRODUCT USED FOR UNKNOWN INDICATION

REACTIONS (3)
  - Injection site pain [Unknown]
  - Headache [Unknown]
  - Nausea [Unknown]
